FAERS Safety Report 9292516 (Version 1)
Quarter: 2013Q2

REPORT INFORMATION
  Report Type: Spontaneous
  Country: US (occurrence: US)
  Receive Date: 20130516
  Receipt Date: 20130516
  Transmission Date: 20140414
  Serious: Yes (Disabling)
  Sender: FDA-Public Use
  Company Number: US-PFIZER INC-2013146615

PATIENT
  Age: 64 Year
  Sex: Male
  Weight: 102 kg

DRUGS (2)
  1. VIAGRA [Suspect]
     Indication: SEXUAL DYSFUNCTION
     Dosage: 100 MG, 1X/DAY
  2. LEVEMIR [Concomitant]
     Indication: DIABETES MELLITUS
     Dosage: 50 MG, 2X/DAY

REACTIONS (1)
  - Musculoskeletal disorder [Not Recovered/Not Resolved]
